FAERS Safety Report 9196051 (Version 1)
Quarter: 2013Q1

REPORT INFORMATION
  Report Type: Spontaneous
  Country: CZ (occurrence: CZ)
  Receive Date: 20130328
  Receipt Date: 20130328
  Transmission Date: 20140127
  Serious: Yes (Death, Hospitalization)
  Sender: FDA-Public Use
  Company Number: PHHY2013CZ012931

PATIENT
  Sex: Female

DRUGS (1)
  1. AFINITOR [Suspect]
     Indication: PANCREATIC NEUROENDOCRINE TUMOUR METASTATIC
     Dosage: 5 MG, UNK
     Route: 048

REACTIONS (5)
  - Immunosuppression [Fatal]
  - Pneumonia [Fatal]
  - Cough [Fatal]
  - Dyspnoea [Fatal]
  - Pyrexia [Fatal]
